FAERS Safety Report 6325218-2 (Version None)
Quarter: 2009Q3

REPORT INFORMATION
  Report Type: 
  Country: None (occurrence: None)
  Receive Date: 20090824
  Receipt Date: 20090626
  Transmission Date: 20100115
  Serious: No
  Sender: FDA-Public Use
  Company Number: US-ABBOTT-09P-163-0582628-00

PATIENT
  Sex: Female
  Weight: 81.72 kg

DRUGS (9)
  1. NIASPAN [Suspect]
     Indication: BLOOD CHOLESTEROL INCREASED
     Dates: start: 20090501
  2. NIASPAN [Suspect]
     Indication: HIGH DENSITY LIPOPROTEIN DECREASED
     Dates: start: 20090501, end: 20090501
  3. NIASPAN [Suspect]
     Indication: LOW DENSITY LIPOPROTEIN INCREASED
     Dates: end: 20090501
  4. NIASPAN [Suspect]
  5. ALDACTONE [Concomitant]
     Indication: HYPERTENSION
     Dosage: 75 MG IN AM AND 50 MG LATER IN DAY
  6. COZAAR [Concomitant]
     Indication: HYPERTENSION
  7. TOPROL-XL [Concomitant]
     Indication: HYPERTENSION
  8. ASPIRIN [Concomitant]
     Indication: CARDIOVASCULAR EVENT PROPHYLAXIS
     Dosage: VARIES. AT LEAST ONCE A WEEK
  9. LOVAZA [Concomitant]
     Indication: ARTHROPATHY

REACTIONS (4)
  - BLOOD GLUCOSE INCREASED [None]
  - EAR DISCOMFORT [None]
  - FEELING HOT [None]
  - SLEEP DISORDER [None]
